FAERS Safety Report 5531307-2 (Version None)
Quarter: 2007Q4

REPORT INFORMATION
  Report Type: 
  Country: None (occurrence: None)
  Receive Date: 20071128
  Receipt Date: 20071112
  Transmission Date: 20080405
  Serious: Yes (Death, Life-Threatening)
  Sender: FDA-Public Use
  Company Number: 2007-00060

PATIENT
  Age: 80 Year
  Sex: Male
  Weight: 50 kg

DRUGS (11)
  1. VELCADE [Suspect]
     Indication: MULTIPLE MYELOMA
     Dosage: 1.30 MG/M2
     Dates: start: 20061229, end: 20070108
  2. LAFUTIDINE (LAFUTIDINE) [Concomitant]
  3. SELBEX (TEPRENONE) [Concomitant]
  4. DIFLUCAN [Concomitant]
  5. ALENDRONATE SODIUM [Concomitant]
  6. ROHYPNOL (FLUNITRAZEPAM) [Concomitant]
  7. BAKTAR (SULFAMETHOXAZOLE, TRIMETHOPRIM) [Concomitant]
  8. HEPARIN [Concomitant]
  9. SOLU-MEDROL [Concomitant]
  10. DOPAMINE HCL [Concomitant]
  11. PLATELETS [Concomitant]

REACTIONS (33)
  - AORTIC ARTERIOSCLEROSIS [None]
  - AORTIC THROMBOSIS [None]
  - ATROPHY [None]
  - BONE MARROW FAILURE [None]
  - BRONCHOPNEUMONIA [None]
  - CARDIO-RESPIRATORY ARREST [None]
  - DECREASED APPETITE [None]
  - ELECTROCARDIOGRAM QT PROLONGED [None]
  - EXCESSIVE GRANULATION TISSUE [None]
  - FAT NECROSIS [None]
  - FIBROMA [None]
  - GAZE PALSY [None]
  - HEPATIC STEATOSIS [None]
  - HYPOKALAEMIA [None]
  - HYPOTENSION [None]
  - METASTASES TO BONE [None]
  - NEPHROLITHIASIS [None]
  - NO THERAPEUTIC RESPONSE [None]
  - PANCREATOLITHIASIS [None]
  - PLEURAL EFFUSION [None]
  - PLEURISY [None]
  - POST PROCEDURAL HAEMORRHAGE [None]
  - PULMONARY ARTERY THROMBOSIS [None]
  - PULMONARY EMBOLISM [None]
  - PULMONARY OEDEMA [None]
  - RENAL ABSCESS [None]
  - RESPIRATORY FAILURE [None]
  - SPINAL OSTEOARTHRITIS [None]
  - SPLEEN CONGESTION [None]
  - SPLEEN DISORDER [None]
  - TORSADE DE POINTES [None]
  - VENOUS THROMBOSIS [None]
  - VENTRICULAR TACHYCARDIA [None]
